FAERS Safety Report 4560866-1 (Version None)
Quarter: 2005Q1

REPORT INFORMATION
  Report Type: 
  Country: None (occurrence: None)
  Receive Date: 20050121
  Receipt Date: 20050114
  Transmission Date: 20050727
  Serious: Yes (Life-Threatening)
  Sender: FDA-Public Use
  Company Number: 2005AP00239

PATIENT
  Age: 54 Year
  Sex: Female

DRUGS (6)
  1. DIPRIVAN [Suspect]
     Dosage: 1 % IV
     Route: 042
  2. CEFOTIAM HYDROCHLORIDE [Suspect]
     Dosage: 1 G BID IV
     Route: 042
     Dates: start: 20050112, end: 20050113
  3. MUSCULAX [Concomitant]
  4. FENTANEST [Concomitant]
  5. ATROPINE SULFATE [Concomitant]
  6. VAGOSTIGMIN [Concomitant]

REACTIONS (1)
  - LIVER DISORDER [None]
